FAERS Safety Report 16044530 (Version 1)
Quarter: 2019Q1

REPORT INFORMATION
  Report Type: Report from Study
  Country: None (occurrence: US)
  Receive Date: 20190306
  Receipt Date: 20190306
  Transmission Date: 20190418
  Serious: Yes (Other)
  Sender: FDA-Public Use
  Company Number: US-ABBVIE-18K-163-2387221-00

PATIENT
  Age: 84 Year
  Sex: Female

DRUGS (2)
  1. HUMIRA [Suspect]
     Active Substance: ADALIMUMAB
     Indication: PSORIATIC ARTHROPATHY
     Route: 058
  2. HUMIRA [Suspect]
     Active Substance: ADALIMUMAB
     Indication: PSORIATIC ARTHROPATHY
     Route: 058
     Dates: start: 20180531

REACTIONS (11)
  - Joint swelling [Not Recovered/Not Resolved]
  - Exostosis [Unknown]
  - Joint stiffness [Not Recovered/Not Resolved]
  - Pain in extremity [Recovering/Resolving]
  - Arthralgia [Recovering/Resolving]
  - Drug ineffective [Unknown]
  - Injection site erythema [Unknown]
  - Injection site rash [Unknown]
  - Injection site pruritus [Unknown]
  - Peripheral swelling [Recovering/Resolving]
  - Musculoskeletal stiffness [Not Recovered/Not Resolved]

NARRATIVE: CASE EVENT DATE: 2018
